FAERS Safety Report 21049194 (Version 1)
Quarter: 2022Q3

REPORT INFORMATION
  Report Type: Spontaneous
  Country: US (occurrence: US)
  Receive Date: 20220706
  Receipt Date: 20220706
  Transmission Date: 20221027
  Serious: Yes (Other)
  Sender: FDA-Public Use
  Company Number: US-JNJFOC-20220660350

PATIENT
  Sex: Female

DRUGS (1)
  1. BENADRYL ALLERGY ULTRATAB [Suspect]
     Active Substance: DIPHENHYDRAMINE HYDROCHLORIDE
     Indication: Pruritus
     Dosage: 1 TABLET, ONCE A DAY
     Route: 065
     Dates: start: 20220626

REACTIONS (4)
  - Product use in unapproved indication [Unknown]
  - Hallucination [Unknown]
  - Feeling abnormal [Unknown]
  - Flatulence [Unknown]
